FAERS Safety Report 7979644-6 (Version None)
Quarter: 2011Q4

REPORT INFORMATION
  Report Type: 
  Country: None (occurrence: None)
  Receive Date: 20111213
  Receipt Date: 20111213
  Transmission Date: 20120403
  Serious: Yes (Death, Hospitalization)
  Sender: FDA-Public Use
  Company Number: None

PATIENT
  Sex: Male
  Weight: 66.9 kg

DRUGS (9)
  1. AMIODARONE HCL [Concomitant]
  2. METOPROLOL [Concomitant]
  3. CISPLATIN [Suspect]
     Dosage: 140.3 MG
     Dates: end: 20110518
  4. EMEND [Concomitant]
  5. COMPAZINE [Concomitant]
  6. ETOPOSIDE [Suspect]
     Dosage: 564 MG
     Dates: end: 20110520
  7. ALBUTEROL [Concomitant]
  8. DILAUDID [Concomitant]
  9. DEXAMETHASONE TAB [Concomitant]

REACTIONS (7)
  - VOMITING [None]
  - PULSE ABSENT [None]
  - BRONCHITIS [None]
  - NAUSEA [None]
  - CARDIAC ARREST [None]
  - UNRESPONSIVE TO STIMULI [None]
  - CONCOMITANT DISEASE PROGRESSION [None]
